FAERS Safety Report 20810319 (Version 1)
Quarter: 2022Q2

REPORT INFORMATION
  Report Type: Spontaneous
  Country: DK (occurrence: DK)
  Receive Date: 20220510
  Receipt Date: 20220510
  Transmission Date: 20220721
  Serious: Yes (Other)
  Sender: FDA-Public Use
  Company Number: None

PATIENT
  Age: 50 Year
  Sex: Female
  Weight: 57 kg

DRUGS (1)
  1. PENICILLIN V [Suspect]
     Active Substance: PENICILLIN V
     Indication: Tetanus
     Dosage: 1980 MG, QD (STRENGTH: 1 MILL. IE (660 MG))
     Route: 048
     Dates: start: 20210301, end: 20210307

REACTIONS (2)
  - Ocular hypertension [Recovered/Resolved]
  - Gingivitis [Recovering/Resolving]

NARRATIVE: CASE EVENT DATE: 20210305
